FAERS Safety Report 23231238 (Version 2)
Quarter: 2023Q4

REPORT INFORMATION
  Report Type: Spontaneous
  Country: SE (occurrence: SE)
  Receive Date: 20231127
  Receipt Date: 20231205
  Transmission Date: 20240110
  Serious: Yes (Other)
  Sender: FDA-Public Use
  Company Number: SE-SAMSUNG BIOEPIS-SB-2023-31289

PATIENT
  Age: 14 Year
  Sex: Female

DRUGS (8)
  1. ADALIMUMAB [Suspect]
     Active Substance: ADALIMUMAB\ISOPROPYL ALCOHOL
     Indication: Osteomyelitis chronic
     Route: 058
  2. ADALIMUMAB [Suspect]
     Active Substance: ADALIMUMAB\ISOPROPYL ALCOHOL
     Route: 058
  3. ANAKINRA [Concomitant]
     Active Substance: ANAKINRA
     Indication: Osteomyelitis chronic
     Route: 065
  4. ANAKINRA [Concomitant]
     Active Substance: ANAKINRA
     Route: 065
  5. ANAKINRA [Concomitant]
     Active Substance: ANAKINRA
     Route: 065
  6. ANAKINRA [Concomitant]
     Active Substance: ANAKINRA
     Route: 065
  7. PAMIDRONATE [Concomitant]
     Active Substance: PAMIDRONATE DISODIUM
     Indication: Osteomyelitis chronic
     Dosage: FIRST DOSE;
     Route: 065
  8. PAMIDRONATE [Concomitant]
     Active Substance: PAMIDRONATE DISODIUM
     Dosage: DOSE TWO-FOUR;
     Route: 065

REACTIONS (3)
  - Osteomyelitis chronic [Recovered/Resolved]
  - Drug effective for unapproved indication [Unknown]
  - Off label use [Unknown]
